FAERS Safety Report 6918554-X (Version None)
Quarter: 2010Q3

REPORT INFORMATION
  Report Type: 
  Country: None (occurrence: None)
  Receive Date: 20100811
  Receipt Date: 20100803
  Transmission Date: 20110219
  Serious: Yes (Hospitalization)
  Sender: FDA-Public Use
  Company Number: US-JNJFOC-20100801505

PATIENT
  Sex: Male

DRUGS (4)
  1. FENTANYL-100 [Suspect]
     Indication: PAIN
     Route: 062
  2. FENTANYL-100 [Suspect]
     Route: 062
  3. FENTANYL-100 [Suspect]
     Indication: BACK PAIN
     Route: 062
  4. FENTANYL-100 [Suspect]
     Route: 062

REACTIONS (4)
  - CATATONIA [None]
  - HALLUCINATION [None]
  - IMPAIRED HEALING [None]
  - PAIN [None]
